FAERS Safety Report 10505320 (Version 1)
Quarter: 2014Q3

REPORT INFORMATION
  Report Type: Spontaneous
  Country: US (occurrence: None)
  Receive Date: 20140915
  Receipt Date: 20140915
  Transmission Date: 20150326
  Serious: Yes (Other)
  Sender: FDA-Public Use
  Company Number: 2014-US-007852

PATIENT
  Age: 57 Year
  Sex: Female

DRUGS (1)
  1. XYREM [Suspect]
     Active Substance: SODIUM OXYBATE
     Indication: NARCOLEPSY
     Route: 048
     Dates: start: 200612, end: 201207

REACTIONS (7)
  - Depression [None]
  - Feeling abnormal [None]
  - Depressed level of consciousness [None]
  - Asthenia [None]
  - Nausea [None]
  - Weight increased [None]
  - Somnolence [None]

NARRATIVE: CASE EVENT DATE: 2014
